FAERS Safety Report 26109640 (Version 1)
Quarter: 2025Q4

REPORT INFORMATION
  Report Type: Spontaneous
  Country: EU (occurrence: EU)
  Receive Date: 20251201
  Receipt Date: 20251201
  Transmission Date: 20260119
  Serious: Yes (Other)
  Sender: MYLAN
  Company Number: None

PATIENT
  Age: 33 Year
  Sex: Female
  Weight: 60 kg

DRUGS (16)
  1. PACLITAXEL [Suspect]
     Active Substance: PACLITAXEL
     Indication: Ovarian epithelial cancer
     Dosage: 287 MILLIGRAM
     Dates: start: 20250314, end: 20250314
  2. PACLITAXEL [Suspect]
     Active Substance: PACLITAXEL
     Dosage: 287 MILLIGRAM
     Route: 042
     Dates: start: 20250314, end: 20250314
  3. PACLITAXEL [Suspect]
     Active Substance: PACLITAXEL
     Dosage: 287 MILLIGRAM
     Route: 042
     Dates: start: 20250314, end: 20250314
  4. PACLITAXEL [Suspect]
     Active Substance: PACLITAXEL
     Dosage: 287 MILLIGRAM
     Dates: start: 20250314, end: 20250314
  5. CARBOPLATIN [Suspect]
     Active Substance: CARBOPLATIN
     Indication: Ovarian epithelial cancer
     Dosage: 503 MILLIGRAM
     Dates: start: 20250314, end: 20250314
  6. CARBOPLATIN [Suspect]
     Active Substance: CARBOPLATIN
     Dosage: 503 MILLIGRAM
     Route: 042
     Dates: start: 20250314, end: 20250314
  7. CARBOPLATIN [Suspect]
     Active Substance: CARBOPLATIN
     Dosage: 503 MILLIGRAM
     Route: 042
     Dates: start: 20250314, end: 20250314
  8. CARBOPLATIN [Suspect]
     Active Substance: CARBOPLATIN
     Dosage: 503 MILLIGRAM
     Dates: start: 20250314, end: 20250314
  9. BEVACIZUMAB [Suspect]
     Active Substance: BEVACIZUMAB
     Indication: Ovarian epithelial cancer
     Dosage: 900 MILLIGRAM
     Dates: start: 20250314, end: 20250314
  10. BEVACIZUMAB [Suspect]
     Active Substance: BEVACIZUMAB
     Dosage: 900 MILLIGRAM
     Route: 042
     Dates: start: 20250314, end: 20250314
  11. BEVACIZUMAB [Suspect]
     Active Substance: BEVACIZUMAB
     Dosage: 900 MILLIGRAM
     Route: 042
     Dates: start: 20250314, end: 20250314
  12. BEVACIZUMAB [Suspect]
     Active Substance: BEVACIZUMAB
     Dosage: 900 MILLIGRAM
     Dates: start: 20250314, end: 20250314
  13. Akynzeo [Concomitant]
     Dosage: UNK
  14. Akynzeo [Concomitant]
     Dosage: UNK
     Route: 065
  15. Akynzeo [Concomitant]
     Dosage: UNK
     Route: 065
  16. Akynzeo [Concomitant]
     Dosage: UNK

REACTIONS (2)
  - Thrombocytopenia [Recovering/Resolving]
  - Vision blurred [Recovering/Resolving]

NARRATIVE: CASE EVENT DATE: 20250320
